FAERS Safety Report 7041894-3 (Version None)
Quarter: 2010Q4

REPORT INFORMATION
  Report Type: 
  Country: None (occurrence: None)
  Receive Date: 20101013
  Receipt Date: 20100215
  Transmission Date: 20110411
  Serious: No
  Sender: FDA-Public Use
  Company Number: US-ASTRAZENECA-2010SE06659

PATIENT
  Age: 79 Year
  Sex: Female

DRUGS (6)
  1. SYMBICORT [Suspect]
     Dosage: 160/4.5, BID
     Route: 055
     Dates: start: 20090101
  2. DILTIAZEM [Concomitant]
  3. FUROSEMIDE [Concomitant]
  4. VITAMINS [Concomitant]
  5. LISINOPRIL [Concomitant]
  6. ASPIRIN [Concomitant]

REACTIONS (2)
  - ANXIETY [None]
  - DYSGEUSIA [None]
